FAERS Safety Report 17110104 (Version 3)
Quarter: 2019Q4

REPORT INFORMATION
  Report Type: Spontaneous
  Country: CN (occurrence: CN)
  Receive Date: 20191204
  Receipt Date: 20191229
  Transmission Date: 20200122
  Serious: Yes (Other)
  Sender: FDA-Public Use
  Company Number: CN-BEH-2019110074

PATIENT
  Age: 28 Year
  Sex: Female

DRUGS (4)
  1. ALBURX [Suspect]
     Active Substance: ALBUMIN HUMAN
     Indication: THERMAL BURN
     Dosage: UNK
     Route: 065
  2. ALBURX [Suspect]
     Active Substance: ALBUMIN HUMAN
     Dosage: UNK
     Route: 065
  3. ALBURX [Suspect]
     Active Substance: ALBUMIN HUMAN
     Dosage: UNK
     Route: 065
  4. ALBURX [Suspect]
     Active Substance: ALBUMIN HUMAN
     Dosage: 90 DOSAGE FORM, TOT
     Route: 065

REACTIONS (2)
  - Hepatitis B virus test positive [Unknown]
  - Suspected transmission of an infectious agent via product [Unknown]

NARRATIVE: CASE EVENT DATE: 201911
